FAERS Safety Report 6645170-X (Version None)
Quarter: 2010Q1

REPORT INFORMATION
  Report Type: 
  Country: None (occurrence: None)
  Receive Date: 20100308
  Receipt Date: 20100224
  Transmission Date: 20100710
  Serious: No
  Sender: FDA-Public Use
  Company Number: 2010-00293

PATIENT
  Age: 62 Year
  Sex: Female
  Weight: 77.1115 kg

DRUGS (3)
  1. ZICAM COLD REMEDY RAPIDMELTS WITH VITAMIN C [Suspect]
     Dosage: Q 4 HRS - 2 DAYS
     Dates: start: 20100203, end: 20100205
  2. NEURONTIN [Concomitant]
  3. HYDRODIURIL [Concomitant]

REACTIONS (3)
  - AGEUSIA [None]
  - HYPOAESTHESIA ORAL [None]
  - ORAL DISORDER [None]
